FAERS Safety Report 4345859-1 (Version None)
Quarter: 2004Q2

REPORT INFORMATION
  Report Type: 
  Country: None (occurrence: None)
  Receive Date: 20040423
  Receipt Date: 20040423
  Transmission Date: 20050107
  Serious: Yes (Other)
  Sender: FDA-Public Use
  Company Number: None

PATIENT
  Age: 50 Year
  Sex: Male
  Weight: 84.6 kg

DRUGS (1)
  1. GAMMAR [Suspect]
     Indication: MULTIPLE MYELOMA
     Dosage: 20 GM GAMMAR P IVPB
     Route: 042
     Dates: start: 20040419

REACTIONS (3)
  - CHILLS [None]
  - HEADACHE [None]
  - TREMOR [None]
